FAERS Safety Report 8801536 (Version 1)
Quarter: 2012Q4

REPORT INFORMATION
  Report Type: 
  Country: US (occurrence: US)
  Receive Date: 20120921
  Receipt Date: 20120921
  Transmission Date: 20130627
  Serious: Yes (Other)
  Sender: FDA-Public Use
  Company Number: US-PERRIGO-12US007951

PATIENT
  Age: 58 Year
  Sex: Female
  Weight: 78.01 kg

DRUGS (1)
  1. MINOXIDIL FOR WOMEN [Suspect]
     Indication: ALOPECIA
     Dosage: 1 mL, bid
     Route: 061
     Dates: start: 20120905, end: 20120908

REACTIONS (4)
  - Swelling face [Recovering/Resolving]
  - Hypersensitivity [Recovering/Resolving]
  - Off label use [Recovered/Resolved]
  - Drug hypersensitivity [None]
